FAERS Safety Report 8248803 (Version 4)
Quarter: 2012Q4

REPORT INFORMATION
  Report Type: Report from Study
  Country: JP (occurrence: JP)
  Receive Date: 20111117
  Receipt Date: 20120904
  Transmission Date: 20130627
  Serious: Yes (Hospitalization, Other)
  Sender: FDA-Public Use
  Company Number: PHHO2011JP018906

PATIENT
  Age: 53 Year
  Sex: Male
  Weight: 69 kg

DRUGS (5)
  1. IMATINIB [Suspect]
     Indication: CHRONIC MYELOID LEUKAEMIA
     Dosage: 400 mg, UNK
     Route: 048
     Dates: start: 20080815, end: 20120118
  2. DEPAS [Concomitant]
     Indication: INSOMNIA
     Dosage: 0.5 mg, UNK
     Route: 048
     Dates: start: 20101014
  3. LACTOBACILLUS ACIDOPHILUS [Concomitant]
     Indication: PROPHYLAXIS AGAINST DIARRHOEA
     Dosage: UNK
     Route: 048
     Dates: start: 20081010
  4. FLAVERIC [Concomitant]
     Dosage: UNK
     Route: 048
     Dates: start: 20110615, end: 20110822
  5. CARBOCYSTEINE [Concomitant]
     Indication: BRONCHITIS CHRONIC
     Dosage: UNK
     Route: 048
     Dates: start: 20110615, end: 20110822

REACTIONS (2)
  - B-cell lymphoma [Recovering/Resolving]
  - Second primary malignancy [Recovering/Resolving]
